FAERS Safety Report 9696880 (Version 1)
Quarter: 2013Q4

REPORT INFORMATION
  Report Type: Spontaneous
  Country: US (occurrence: US)
  Receive Date: 20131119
  Receipt Date: 20131119
  Transmission Date: 20140711
  Serious: No
  Sender: FDA-Public Use
  Company Number: US-GILEAD-2007-0013981

PATIENT
  Age: 84 Year
  Sex: Female
  Weight: 62.7 kg

DRUGS (11)
  1. LETAIRIS [Suspect]
     Indication: PULMONARY HYPERTENSION
     Route: 048
     Dates: start: 20070912, end: 20070915
  2. LASIX [Concomitant]
     Route: 048
  3. AMARYL [Concomitant]
     Route: 048
  4. COUMADIN [Concomitant]
     Route: 048
  5. VIGAMOX [Concomitant]
     Route: 047
  6. ASPIRIN [Concomitant]
     Route: 048
  7. DIOVAN [Concomitant]
     Route: 048
  8. TOPROL XL [Concomitant]
     Route: 048
  9. LIPITOR [Concomitant]
     Route: 048
  10. SPIRONOLACTONE [Concomitant]
     Route: 048
  11. CARDIZEM [Concomitant]
     Route: 048

REACTIONS (3)
  - Weight increased [Recovered/Resolved]
  - Dyspnoea [Recovered/Resolved]
  - Vision blurred [Recovered/Resolved]
